FAERS Safety Report 17354419 (Version 1)
Quarter: 2020Q1

REPORT INFORMATION
  Report Type: Spontaneous
  Country: US (occurrence: US)
  Receive Date: 20200130
  Receipt Date: 20200130
  Transmission Date: 20200409
  Serious: Yes (Death)
  Sender: FDA-Public Use
  Company Number: None

PATIENT
  Sex: Female

DRUGS (8)
  1. GRANIX [Suspect]
     Active Substance: TBO-FILGRASTIM
     Indication: PANCREATIC CARCINOMA
     Dosage: ?          OTHER FREQUENCY:DAILY FOR 4 DAYS;?
     Route: 058
     Dates: start: 20191113
  2. VENLAFAXINE [Concomitant]
     Active Substance: VENLAFAXINE HYDROCHLORIDE
  3. CLONAZEPAM. [Concomitant]
     Active Substance: CLONAZEPAM
  4. MODAFINIL. [Concomitant]
     Active Substance: MODAFINIL
  5. HALOPERIDOL. [Concomitant]
     Active Substance: HALOPERIDOL
  6. MEGESTROL [Concomitant]
     Active Substance: MEGESTROL
  7. PROGESTERONE. [Concomitant]
     Active Substance: PROGESTERONE
  8. CREON [Concomitant]
     Active Substance: PANCRELIPASE AMYLASE\PANCRELIPASE LIPASE\PANCRELIPASE PROTEASE

REACTIONS (1)
  - Death [None]
